FAERS Safety Report 5743889-6 (Version None)
Quarter: 2008Q2

REPORT INFORMATION
  Report Type: 
  Country: None (occurrence: None)
  Receive Date: 20080520
  Receipt Date: 20080509
  Transmission Date: 20081010
  Serious: Yes (Hospitalization)
  Sender: FDA-Public Use
  Company Number: US-JNJFOC-20080104878

PATIENT
  Sex: Female

DRUGS (7)
  1. REMICADE [Suspect]
     Route: 042
  2. REMICADE [Suspect]
     Indication: RHEUMATOID ARTHRITIS
     Route: 042
  3. SULFASALAZINE [Concomitant]
     Dosage: DOSE: 2 TABS BID
     Route: 048
  4. NORCO [Concomitant]
     Dosage: 325;10MG
  5. FOLIC ACID [Concomitant]
  6. TRAZODONE HCL [Concomitant]
  7. BENADRYL [Concomitant]

REACTIONS (8)
  - CROHN'S DISEASE [None]
  - DYSPNOEA [None]
  - HYPERTENSION [None]
  - INFUSION RELATED REACTION [None]
  - POLYARTHRITIS [None]
  - PRURITUS [None]
  - PYREXIA [None]
  - VOMITING [None]
